FAERS Safety Report 18152410 (Version 9)
Quarter: 2020Q3

REPORT INFORMATION
  Report Type: Report from Study
  Country: KR (occurrence: KR)
  Receive Date: 20200814
  Receipt Date: 20200928
  Transmission Date: 20201103
  Serious: Yes (Death)
  Sender: FDA-Public Use
  Company Number: KR-EISAI MEDICAL RESEARCH-EC-2020-078986

PATIENT
  Age: 58 Year
  Sex: Male
  Weight: 48.7 kg

DRUGS (12)
  1. CODEINE [Concomitant]
     Active Substance: CODEINE
     Dates: start: 20191120
  2. PEMBROLIZUMAB. [Suspect]
     Active Substance: PEMBROLIZUMAB
     Route: 041
     Dates: start: 20200728, end: 20200728
  3. LENVATINIB [Suspect]
     Active Substance: LENVATINIB
     Indication: NON-SMALL CELL LUNG CANCER METASTATIC
     Route: 048
     Dates: start: 20200708
  4. PEMBROLIZUMAB. [Suspect]
     Active Substance: PEMBROLIZUMAB
     Indication: NON-SMALL CELL LUNG CANCER METASTATIC
     Route: 041
     Dates: start: 20200708, end: 20200708
  5. CYMBALTA [Concomitant]
     Active Substance: DULOXETINE HYDROCHLORIDE
     Dates: start: 20190318
  6. EXOPERINE [Concomitant]
     Dates: start: 20200722
  7. MULTAQ [Concomitant]
     Active Substance: DRONEDARONE
     Dates: start: 20190725
  8. TARGIN [Concomitant]
     Active Substance: NALOXONE HYDROCHLORIDE\OXYCODONE HYDROCHLORIDE
     Dates: start: 20200722
  9. FENTORA [Concomitant]
     Active Substance: FENTANYL CITRATE
     Dates: start: 20200722
  10. LYRICA [Concomitant]
     Active Substance: PREGABALIN
     Dates: start: 20190318
  11. URSA TABLETS [Concomitant]
     Dates: start: 20200708
  12. MOBIC [Concomitant]
     Active Substance: MELOXICAM
     Dates: start: 20200728

REACTIONS (1)
  - Death [Fatal]

NARRATIVE: CASE EVENT DATE: 20200812
